FAERS Safety Report 6316153-4 (Version None)
Quarter: 2009Q3

REPORT INFORMATION
  Report Type: 
  Country: None (occurrence: None)
  Receive Date: 20090820
  Receipt Date: 20090814
  Transmission Date: 20100115
  Serious: Yes (Death, Hospitalization)
  Sender: FDA-Public Use
  Company Number: IN-ELI_LILLY_AND_COMPANY-IN200908003146

PATIENT
  Age: 59 Year
  Sex: Male

DRUGS (1)
  1. XIGRIS [Suspect]
     Indication: PYREXIA
     Dosage: 7.8 ML, EVERY HOUR
     Route: 065
     Dates: start: 20090813, end: 20090813

REACTIONS (3)
  - CONVULSION [None]
  - OFF LABEL USE [None]
  - SEPTIC SHOCK [None]
